FAERS Safety Report 6979323-8 (Version None)
Quarter: 2010Q3

REPORT INFORMATION
  Report Type: 
  Country: None (occurrence: None)
  Receive Date: 20100824
  Receipt Date: 20100621
  Transmission Date: 20110219
  Serious: No
  Sender: FDA-Public Use
  Company Number: 310566

PATIENT
  Age: 43 Year
  Sex: Female

DRUGS (3)
  1. VICTOZA [Suspect]
     Indication: PRODUCT USED FOR UNKNOWN INDICATION
     Dosage: SUBCUTANEOUS
     Route: 058
     Dates: start: 20100525
  2. LANTUS [Concomitant]
  3. AMEROL (LOPERAMIDE HYDROCHLORIDE) [Concomitant]

REACTIONS (2)
  - INJECTION SITE RASH [None]
  - RASH [None]
